FAERS Safety Report 9084649 (Version 2)
Quarter: 2013Q1

REPORT INFORMATION
  Report Type: Spontaneous
  Country: US (occurrence: US)
  Receive Date: 20130131
  Receipt Date: 20130304
  Transmission Date: 20140127
  Serious: No
  Sender: FDA-Public Use
  Company Number: US-PFIZER INC-2013036848

PATIENT
  Age: 64 Year
  Sex: Male

DRUGS (2)
  1. INLYTA [Suspect]
     Indication: RENAL CELL CARCINOMA
     Dosage: 5 MG, 2X/DAY
     Route: 048
     Dates: start: 20121219
  2. TARCEVA [Suspect]
     Indication: RENAL CELL CARCINOMA
     Dosage: 150 MG, 1X/DAY
     Route: 048
     Dates: start: 20121128

REACTIONS (5)
  - Rash [Recovering/Resolving]
  - Rash [Recovering/Resolving]
  - Rash [Unknown]
  - Joint swelling [Recovering/Resolving]
  - Local swelling [Recovering/Resolving]
